FAERS Safety Report 5662361-5 (Version None)
Quarter: 2008Q1

REPORT INFORMATION
  Report Type: 
  Country: None (occurrence: None)
  Receive Date: 20080313
  Receipt Date: 20080229
  Transmission Date: 20080703
  Serious: Yes (Hospitalization)
  Sender: FDA-Public Use
  Company Number: US-RANBAXY-2008RR-13452

PATIENT

DRUGS (3)
  1. PROMETHAZINE [Suspect]
     Route: 048
  2. PROMETHAZINE [Suspect]
     Route: 042
  3. CODEINE SUL TAB [Suspect]

REACTIONS (1)
  - PSYCHOTIC DISORDER [None]
